FAERS Safety Report 8275408-7 (Version None)
Quarter: 2012Q2

REPORT INFORMATION
  Report Type: 
  Country: None (occurrence: None)
  Receive Date: 20120411
  Receipt Date: 20120402
  Transmission Date: 20120825
  Serious: Yes (Hospitalization)
  Sender: FDA-Public Use
  Company Number: US-AMGEN-USASP2012002623

PATIENT
  Age: 55 Year
  Sex: Female
  Weight: 62.132 kg

DRUGS (9)
  1. HYDROCODONE [Concomitant]
     Indication: PSORIATIC ARTHROPATHY
     Dosage: UNK UNK, TID
     Route: 048
  2. ENBREL [Suspect]
     Dosage: 50 MG, QWK
     Dates: start: 20080214, end: 20110101
  3. ENBREL [Suspect]
     Indication: RHEUMATOID ARTHRITIS
     Dosage: UNK, QWK
     Route: 058
     Dates: start: 20080703, end: 20110301
  4. VITAMIN B-12 [Concomitant]
     Dosage: UNK, Q2WK
     Dates: start: 20101214
  5. NABUMETONE [Concomitant]
     Indication: PSORIATIC ARTHROPATHY
     Dosage: UNK UNK, BID
  6. LIPITOR [Concomitant]
     Indication: LIPIDS INCREASED
     Dosage: 10 MG, UNK
     Route: 048
  7. FLUOXETINE [Concomitant]
     Indication: DEPRESSION
     Dosage: 20 MG, UNK
     Route: 048
  8. FEMHRT [Concomitant]
     Indication: POSTMENOPAUSE
     Dosage: UNK UNK, QD
     Route: 048
  9. VITAMIN B-12 [Concomitant]
     Dosage: UNK UNK, QWK
     Dates: start: 20110823

REACTIONS (3)
  - DIARRHOEA [None]
  - LYMPHOID TISSUE HYPERPLASIA [None]
  - PSORIATIC ARTHROPATHY [None]
